FAERS Safety Report 7132859-1 (Version None)
Quarter: 2010Q4

REPORT INFORMATION
  Report Type: 
  Country: None (occurrence: None)
  Receive Date: 20101202
  Receipt Date: 20101123
  Transmission Date: 20110411
  Serious: Yes (Hospitalization)
  Sender: FDA-Public Use
  Company Number: US-ASTRAZENECA-2010SE55753

PATIENT
  Age: 24295 Day
  Sex: Female

DRUGS (3)
  1. NEXIUM [Suspect]
     Indication: GASTROOESOPHAGEAL REFLUX DISEASE
     Route: 048
     Dates: start: 20101109
  2. WARFARIN [Concomitant]
  3. CARTIA XT [Concomitant]

REACTIONS (1)
  - ATRIAL FIBRILLATION [None]
